FAERS Safety Report 6121512-9 (Version None)
Quarter: 2009Q1

REPORT INFORMATION
  Report Type: 
  Country: None (occurrence: None)
  Receive Date: 20090317
  Receipt Date: 20090309
  Transmission Date: 20090719
  Serious: Yes (Hospitalization, Other)
  Sender: FDA-Public Use
  Company Number: DE-ABBOTT-09P-062-0559013-00

PATIENT
  Sex: Male
  Weight: 69 kg

DRUGS (8)
  1. HUMIRA [Suspect]
     Indication: PSORIATIC ARTHROPATHY
     Route: 058
     Dates: start: 20080612, end: 20090126
  2. HYDROCHLOROTHIAZIDE [Suspect]
     Indication: HYPERTONIA
     Route: 048
  3. VALSARTAN [Concomitant]
     Indication: HYPERTONIA
     Dosage: 1/2 TABLET PER DAY
     Route: 048
  4. PROPRANOLOL [Concomitant]
     Indication: HYPERTONIA
     Dosage: 1-0-1
     Route: 048
  5. PANTOPRAZOL [Concomitant]
     Indication: REFLUX OESOPHAGITIS
     Dosage: 1-0-0
     Route: 048
  6. INSULIN ACTRAPID [Concomitant]
     Indication: DIABETES MELLITUS
  7. INSULIN ACTRAPHANE [Concomitant]
     Indication: DIABETES MELLITUS
     Dosage: 26E-0-10E
  8. VITAMIN B COMPLEX CAP [Concomitant]
     Indication: DRUG USE FOR UNKNOWN INDICATION
     Dosage: 1-0-1

REACTIONS (7)
  - ANAEMIA [None]
  - CEREBRAL HAEMORRHAGE [None]
  - CEREBROVASCULAR ACCIDENT [None]
  - DIABETES MELLITUS [None]
  - GASTROINTESTINAL HAEMORRHAGE [None]
  - HEPATIC CIRRHOSIS [None]
  - MELAENA [None]
